FAERS Safety Report 9530850 (Version 1)
Quarter: 2013Q3

REPORT INFORMATION
  Report Type: Spontaneous
  Country: US (occurrence: None)
  Receive Date: 20130916
  Receipt Date: 20130916
  Transmission Date: 20140515
  Serious: No
  Sender: FDA-Public Use
  Company Number: None

PATIENT
  Age: 64 Year
  Sex: Male
  Weight: 85.28 kg

DRUGS (1)
  1. ALEMTUZUMAB [Suspect]
     Dosage: 30 MG SUBQ DAYS 1, 3,5 FROM 10/13/2010 TO 11/22/2010

REACTIONS (1)
  - Thrombocytopenia [None]
